FAERS Safety Report 4703669-7 (Version None)
Quarter: 2005Q2

REPORT INFORMATION
  Report Type: 
  Country: None (occurrence: None)
  Receive Date: 20050208
  Receipt Date: 20050208
  Transmission Date: 20051028
  Serious: No
  Sender: FDA-Public Use
  Company Number: None

PATIENT
  Sex: Female
  Weight: 58.0604 kg

DRUGS (1)
  1. WELLBUTRIN GENERIC 150MG BID PO [Suspect]
     Indication: SMOKING CESSATION THERAPY
     Dosage: 150MG PO BID
     Route: 048

REACTIONS (5)
  - AGITATION [None]
  - CENTRAL NERVOUS SYSTEM STIMULATION [None]
  - HYPERKINESIA [None]
  - INSOMNIA [None]
  - THERAPEUTIC RESPONSE UNEXPECTED WITH DRUG SUBSTITUTION [None]
